FAERS Safety Report 4943909-2 (Version None)
Quarter: 2006Q1

REPORT INFORMATION
  Report Type: 
  Country: None (occurrence: None)
  Receive Date: 20060310
  Receipt Date: 20060228
  Transmission Date: 20060701
  Serious: Yes (Other)
  Sender: FDA-Public Use
  Company Number: 2006030440

PATIENT
  Sex: Female

DRUGS (4)
  1. XALATAN [Suspect]
     Indication: GLAUCOMA
  2. ZOLOFT [Suspect]
     Indication: ILL-DEFINED DISORDER
     Dosage: 25 MG
  3. CARDIZEM [Concomitant]
  4. SYNTHROID [Concomitant]

REACTIONS (3)
  - DEPRESSION [None]
  - GASTRIC INFECTION [None]
  - GLAUCOMA [None]
